FAERS Safety Report 7307307-9 (Version None)
Quarter: 2011Q1

REPORT INFORMATION
  Report Type: 
  Country: None (occurrence: None)
  Receive Date: 20110223
  Receipt Date: 20110217
  Transmission Date: 20110831
  Serious: Yes (Death, Other)
  Sender: FDA-Public Use
  Company Number: JP-ASTELLAS-2011JP001211

PATIENT
  Age: 15 Year
  Sex: Female

DRUGS (10)
  1. METHYLPREDNISOLONE [Concomitant]
     Indication: GRAFT VERSUS HOST DISEASE
     Route: 065
  2. ANTITHYMOCYTE IMMUNOGLOBULIN [Concomitant]
     Indication: GRAFT VERSUS HOST DISEASE
     Route: 065
  3. STEROID [Concomitant]
     Route: 065
  4. STEROID [Concomitant]
     Indication: GRAFT VERSUS HOST DISEASE
     Route: 065
  5. PROGRAF [Suspect]
     Indication: PROPHYLAXIS AGAINST GRAFT VERSUS HOST DISEASE
     Route: 065
  6. MYCOPHENOLATE MOFETIL [Concomitant]
     Indication: GRAFT VERSUS HOST DISEASE
     Route: 065
  7. CYCLOPHOSPHAMIDE [Concomitant]
     Indication: BONE MARROW CONDITIONING REGIMEN
     Route: 065
  8. BUSULFAN [Concomitant]
     Indication: BONE MARROW CONDITIONING REGIMEN
     Route: 065
  9. METHOTREXATE [Concomitant]
     Indication: PROPHYLAXIS AGAINST GRAFT VERSUS HOST DISEASE
     Route: 065
  10. OCTREOTIDE ACETATE [Concomitant]
     Indication: GRAFT VERSUS HOST DISEASE
     Route: 065

REACTIONS (4)
  - DRUG INEFFECTIVE [None]
  - SEPTIC SHOCK [None]
  - GRAFT VERSUS HOST DISEASE [None]
  - BILIARY TRACT INFECTION [None]
